FAERS Safety Report 20040411 (Version 1)
Quarter: 2021Q4

REPORT INFORMATION
  Report Type: Spontaneous
  Country: US (occurrence: None)
  Receive Date: 20211105
  Receipt Date: 20211105
  Transmission Date: 20220303
  Serious: No
  Sender: FDA-Public Use
  Company Number: None

PATIENT
  Age: 50 Year
  Sex: Female

DRUGS (1)
  1. HUMIRA [Suspect]
     Active Substance: ADALIMUMAB
     Dosage: OTHER QUANTITY : PEN;?OTHER FREQUENCY : OTHER;?
     Route: 058

REACTIONS (3)
  - Therapy interrupted [None]
  - Product availability issue [None]
  - Emotional disorder [None]

NARRATIVE: CASE EVENT DATE: 20211105
